FAERS Safety Report 22130330 (Version 1)
Quarter: 2023Q1

REPORT INFORMATION
  Report Type: Spontaneous
  Country: FR (occurrence: FR)
  Receive Date: 20230323
  Receipt Date: 20230323
  Transmission Date: 20230417
  Serious: Yes (Death, Hospitalization)
  Sender: FDA-Public Use
  Company Number: FR-ARBOR PHARMACEUTICALS, LLC-FR-2023ARB003053

PATIENT
  Age: 64 Year
  Sex: Female

DRUGS (1)
  1. GLIADEL [Suspect]
     Active Substance: CARMUSTINE
     Indication: Product used for unknown indication
     Dosage: TOTAL DOSE UNKNOWN (7.7 MG)
     Route: 026
     Dates: start: 20221013

REACTIONS (5)
  - Death [Fatal]
  - Post procedural complication [Unknown]
  - Status epilepticus [Unknown]
  - Wound dehiscence [Unknown]
  - Brain abscess [Unknown]

NARRATIVE: CASE EVENT DATE: 20221001
